FAERS Safety Report 17296862 (Version 2)
Quarter: 2020Q1

REPORT INFORMATION
  Report Type: Spontaneous
  Country: US (occurrence: US)
  Receive Date: 20200121
  Receipt Date: 20200221
  Transmission Date: 20200409
  Serious: Yes (Other)
  Sender: FDA-Public Use
  Company Number: US-COOPERSURGICAL, INC.-US-2020CPS000097

PATIENT
  Age: 27 Year
  Sex: Female
  Weight: 83.45 kg

DRUGS (1)
  1. PARAGARD T 380A [Suspect]
     Active Substance: COPPER
     Indication: CONTRACEPTION
     Dosage: UNK
     Route: 015
     Dates: start: 2012, end: 20200113

REACTIONS (5)
  - Abdominal pain [Recovered/Resolved]
  - Endometrial thickening [Recovering/Resolving]
  - Device expulsion [Recovered/Resolved]
  - Menstruation irregular [Recovering/Resolving]
  - Menorrhagia [Recovering/Resolving]

NARRATIVE: CASE EVENT DATE: 20200107
